FAERS Safety Report 7981325-X (Version None)
Quarter: 2011Q4

REPORT INFORMATION
  Report Type: 
  Country: None (occurrence: None)
  Receive Date: 20111213
  Receipt Date: 20111130
  Transmission Date: 20120403
  Serious: Yes (Hospitalization)
  Sender: FDA-Public Use
  Company Number: 2011FO000313

PATIENT
  Age: 72 Year
  Sex: Female

DRUGS (7)
  1. FUROSEMIDE [Suspect]
     Indication: PRODUCT USED FOR UNKNOWN INDICATION
     Dosage: 20 MG;QD;
  2. DICLOFENAC SODIUM [Suspect]
     Indication: PRODUCT USED FOR UNKNOWN INDICATION
  3. OMEPRAZOLE [Concomitant]
  4. METFORMIN HCL [Suspect]
     Indication: PRODUCT USED FOR UNKNOWN INDICATION
     Dosage: 850 MG;Q12H;
  5. METOCLOPRAMIDE [Suspect]
     Indication: PRODUCT USED FOR UNKNOWN INDICATION
  6. ENALAPRIL MALEATE [Suspect]
     Indication: PRODUCT USED FOR UNKNOWN INDICATION
     Dosage: 5 MG;QD;
  7. ACETYLSALICYLIC ACID SRT [Concomitant]

REACTIONS (14)
  - RENAL FAILURE ACUTE [None]
  - DIARRHOEA [None]
  - LACTIC ACIDOSIS [None]
  - HYPOTENSION [None]
  - ELECTROCARDIOGRAM P WAVE ABNORMAL [None]
  - ELECTROLYTE IMBALANCE [None]
  - BLOOD GLUCOSE INCREASED [None]
  - TACHYPNOEA [None]
  - PAIN IN EXTREMITY [None]
  - BLOOD ELECTROLYTES ABNORMAL [None]
  - HAEMODIALYSIS [None]
  - MUSCULAR WEAKNESS [None]
  - ELECTROCARDIOGRAM QRS COMPLEX PROLONGED [None]
  - ABDOMINAL PAIN [None]
